FAERS Safety Report 10370831 (Version 11)
Quarter: 2018Q2

REPORT INFORMATION
  Report Type: Spontaneous
  Country: GB (occurrence: CH)
  Receive Date: 20140808
  Receipt Date: 20180604
  Transmission Date: 20180711
  Serious: Yes (Hospitalization)
  Sender: FDA-Public Use
  Company Number: GB-PFIZER INC-2014218707

PATIENT
  Age: 78 Year
  Sex: Male
  Weight: 65 kg

DRUGS (12)
  1. CO-DIOVAN [Interacting]
     Active Substance: HYDROCHLOROTHIAZIDE\VALSARTAN
     Indication: HYPERTENSION
     Dosage: 1 DF (HYDROCHLOROTHIAZIDE 80/ VALSARTAN 12.5 MG), ONCE A DAY
     Route: 048
     Dates: end: 20140130
  2. IRFEN [Interacting]
     Active Substance: IBUPROFEN
     Indication: THROMBOSIS PROPHYLAXIS
     Dosage: 400 MG, 3X/DAY
  3. SINTROM [Interacting]
     Active Substance: ACENOCOUMAROL
     Dosage: UNK
     Route: 048
     Dates: start: 20140125, end: 20140130
  4. CALCIPARINE [Interacting]
     Active Substance: HEPARIN CALCIUM
     Dosage: UNK, DAILY
  5. ASPIRIN CARDIO [Interacting]
     Active Substance: ASPIRIN
     Indication: CORONARY ARTERY DISEASE
     Dosage: 100 MG, 1X/DAY, LONG TERM CONTINUING
     Route: 048
  6. CRESTOR [Suspect]
     Active Substance: ROSUVASTATIN CALCIUM
     Dosage: 5 MG, DAILY, QD
     Route: 048
  7. SERTRALINE HCL [Suspect]
     Active Substance: SERTRALINE HYDROCHLORIDE
     Dosage: 50 MG, DAILY
     Dates: end: 20140123
  8. SERTRALINE HCL [Suspect]
     Active Substance: SERTRALINE HYDROCHLORIDE
     Dosage: UNK
  9. IRFEN [Interacting]
     Active Substance: IBUPROFEN
     Indication: PAIN
     Dosage: 1200 MG, 1X/DAY
     Route: 048
     Dates: start: 20140123, end: 20140130
  10. CALCIPARINE [Interacting]
     Active Substance: HEPARIN CALCIUM
     Indication: ATRIAL FIBRILLATION
     Dosage: 25000 IU
     Route: 041
     Dates: start: 20140123, end: 20140128
  11. CLEXANE [Interacting]
     Active Substance: ENOXAPARIN SODIUM
     Indication: ATRIAL FIBRILLATION
     Dosage: 80 MG, TWICE DAILY, BID
     Route: 058
     Dates: start: 20140128, end: 20140130
  12. SINTROM [Interacting]
     Active Substance: ACENOCOUMAROL
     Indication: ATRIAL FIBRILLATION
     Dosage: ACCORDING INR
     Route: 048
     Dates: end: 20140120

REACTIONS (10)
  - Acute kidney injury [Recovered/Resolved]
  - Haemorrhage [Recovered/Resolved]
  - Quadrantanopia [Unknown]
  - Haemarthrosis [Unknown]
  - Drug interaction [Recovered/Resolved]
  - Cerebrovascular accident [Recovered/Resolved]
  - Sensorimotor disorder [Unknown]
  - Hypotension [Unknown]
  - Paresis [Unknown]
  - Haemoglobin decreased [Recovering/Resolving]

NARRATIVE: CASE EVENT DATE: 201401
